FAERS Safety Report 20706267 (Version 1)
Quarter: 2022Q2

REPORT INFORMATION
  Report Type: Spontaneous
  Country: US (occurrence: US)
  Receive Date: 20220413
  Receipt Date: 20220413
  Transmission Date: 20220721
  Serious: No
  Sender: FDA-Public Use
  Company Number: US-SCILEX PHARMACEUTICALS INC.-2021SCX00016

PATIENT
  Sex: Female

DRUGS (2)
  1. ZTLIDO [Suspect]
     Active Substance: LIDOCAINE
     Dosage: UNK, 3 SAMPLE PATCHES
     Route: 061
  2. ZTLIDO [Suspect]
     Active Substance: LIDOCAINE
     Dosage: UNK
     Route: 061

REACTIONS (2)
  - Burning sensation [Unknown]
  - Erythema [Unknown]
